FAERS Safety Report 9928599 (Version 5)
Quarter: 2014Q3

REPORT INFORMATION
  Report Type: Spontaneous
  Country: US (occurrence: US)
  Receive Date: 20140227
  Receipt Date: 20140701
  Transmission Date: 20150326
  Serious: Yes (Other)
  Sender: FDA-Public Use
  Company Number: US-SA-2014SA024123

PATIENT
  Sex: Female

DRUGS (3)
  1. AVAPRO [Suspect]
     Active Substance: IRBESARTAN
     Indication: CARDIOVASCULAR DISORDER
     Route: 065
  2. AVAPRO [Suspect]
     Active Substance: IRBESARTAN
     Indication: CARDIOVASCULAR DISORDER
     Route: 065
  3. AVAPRO [Suspect]
     Active Substance: IRBESARTAN
     Indication: CARDIOVASCULAR DISORDER
     Route: 065

REACTIONS (3)
  - Drug ineffective [Unknown]
  - Dementia [Unknown]
  - Hypertension [Recovered/Resolved]
